FAERS Safety Report 4563857-X (Version None)
Quarter: 2005Q1

REPORT INFORMATION
  Report Type: 
  Country: None (occurrence: None)
  Receive Date: 20050128
  Receipt Date: 20050120
  Transmission Date: 20050727
  Serious: Yes (Other)
  Sender: FDA-Public Use
  Company Number: PHBS2005BR01169

PATIENT
  Age: 46 Year
  Sex: Female

DRUGS (1)
  1. RITALINA [Suspect]
     Route: 048

REACTIONS (1)
  - SYNCOPE [None]
